FAERS Safety Report 6908192-7 (Version None)
Quarter: 2010Q3

REPORT INFORMATION
  Report Type: 
  Country: None (occurrence: None)
  Receive Date: 20100803
  Receipt Date: 20100722
  Transmission Date: 20110219
  Serious: Yes (Other)
  Sender: FDA-Public Use
  Company Number: 2008SP007941

PATIENT
  Age: 18 Year
  Sex: Female

DRUGS (1)
  1. CORICIDIN [Suspect]
     Indication: INTENTIONAL DRUG MISUSE
     Dosage: 48 MG; PO
     Route: 048

REACTIONS (4)
  - DRUG ABUSER [None]
  - INCORRECT DOSE ADMINISTERED [None]
  - INTENTIONAL DRUG MISUSE [None]
  - THEFT [None]
